FAERS Safety Report 15691542 (Version 1)
Quarter: 2018Q4

REPORT INFORMATION
  Report Type: Spontaneous
  Country: CN (occurrence: CN)
  Receive Date: 20181205
  Receipt Date: 20181205
  Transmission Date: 20190205
  Serious: Yes (Other)
  Sender: FDA-Public Use
  Company Number: CN-PFIZER INC-2018495844

PATIENT
  Age: 70 Year
  Sex: Female
  Weight: 45 kg

DRUGS (12)
  1. IODINATED OIL [Concomitant]
     Active Substance: IODINE
     Indication: HEPATIC CANCER
     Dosage: 10 ML, 1X/DAY
     Route: 013
     Dates: start: 20180718, end: 20180718
  2. IODINATED OIL [Concomitant]
     Active Substance: IODINE
     Dosage: 4 ML, 1X/DAY
     Route: 013
     Dates: start: 20180919, end: 20180919
  3. PHARMORUBICIN [Suspect]
     Active Substance: EPIRUBICIN
     Indication: HEPATIC NEOPLASM
     Dosage: 20 MG, 1X/DAY
     Dates: start: 20180919, end: 20180919
  4. OXALIPLATIN. [Suspect]
     Active Substance: OXALIPLATIN
     Indication: HEPATIC NEOPLASM
     Dosage: 50 MG, 1X/DAY
     Route: 013
     Dates: start: 20180718, end: 20180718
  5. APATINIB MESYLATE [Suspect]
     Active Substance: APATINIB
     Dosage: 1 TABLET, 1X/DAY
     Route: 048
     Dates: start: 20180917, end: 20180918
  6. SODIUM CHLORIDE. [Concomitant]
     Active Substance: SODIUM CHLORIDE
     Indication: VEHICLE SOLUTION USE
     Dosage: 50 ML, 1X/DAY
     Route: 013
     Dates: start: 20180718, end: 20180718
  7. APATINIB MESYLATE [Suspect]
     Active Substance: APATINIB
     Indication: HEPATIC NEOPLASM
     Dosage: 1 TABLET, 1X/DAY
     Route: 048
     Dates: start: 20180718, end: 20180721
  8. SODIUM CHLORIDE. [Concomitant]
     Active Substance: SODIUM CHLORIDE
     Dosage: 50 ML, 1X/DAY
     Route: 013
     Dates: start: 20180919, end: 20180919
  9. APATINIB MESYLATE [Suspect]
     Active Substance: APATINIB
     Dosage: 1 TABLET, 1X/DAY
     Route: 048
     Dates: start: 20180923, end: 20181002
  10. GLUCOSE [Concomitant]
     Active Substance: DEXTROSE
     Indication: VEHICLE SOLUTION USE
     Dosage: 50 ML, 1X/DAY
     Route: 013
     Dates: start: 20180718, end: 20180718
  11. AI DA SHENG [EPIRUBICIN HYDROCHLORIDE] [Suspect]
     Active Substance: EPIRUBICIN HYDROCHLORIDE
     Indication: HEPATIC NEOPLASM
     Dosage: 10 MG, 1X/DAY
     Route: 013
     Dates: start: 20180718, end: 20180718
  12. APATINIB MESYLATE [Suspect]
     Active Substance: APATINIB
     Dosage: 1 TABLET, 1X/DAY
     Route: 048
     Dates: start: 20180727, end: 20180813

REACTIONS (1)
  - Interstitial lung disease [Recovering/Resolving]

NARRATIVE: CASE EVENT DATE: 20181001
